FAERS Safety Report 13558199 (Version 4)
Quarter: 2017Q2

REPORT INFORMATION
  Report Type: Spontaneous
  Country: US (occurrence: US)
  Receive Date: 20170517
  Receipt Date: 20170608
  Transmission Date: 20170830
  Serious: Yes (Hospitalization)
  Sender: FDA-Public Use
  Company Number: US-BAUSCH-BL-2017-016462

PATIENT
  Age: 75 Year
  Sex: Male

DRUGS (3)
  1. CUPRIMINE [Suspect]
     Active Substance: PENICILLAMINE
     Indication: NEPHROLITHIASIS
  2. METOPROLOL. [Concomitant]
     Active Substance: METOPROLOL
     Indication: HYPERTENSION
  3. CUPRIMINE [Suspect]
     Active Substance: PENICILLAMINE
     Indication: CYSTINURIA
     Route: 048

REACTIONS (4)
  - Treatment noncompliance [Unknown]
  - Cerebral thrombosis [Recovering/Resolving]
  - Intra-abdominal haemorrhage [Recovered/Resolved]
  - Cerebrovascular accident [Recovering/Resolving]

NARRATIVE: CASE EVENT DATE: 201702
